FAERS Safety Report 11937005 (Version 1)
Quarter: 2016Q1

REPORT INFORMATION
  Report Type: Spontaneous
  Country: US (occurrence: US)
  Receive Date: 20160121
  Receipt Date: 20160121
  Transmission Date: 20160526
  Serious: Yes (Other)
  Sender: FDA-Public Use
  Company Number: US-VALIDUS PHARMACEUTICALS LLC-US-2016VAL000093

PATIENT

DRUGS (3)
  1. ALPRAZOLAM. [Concomitant]
     Active Substance: ALPRAZOLAM
     Indication: PRODUCT USED FOR UNKNOWN INDICATION
     Dosage: UNK
  2. NORPRAMINE [Suspect]
     Active Substance: DESIPRAMINE
     Indication: DEPRESSION
     Dosage: UNK
     Dates: start: 1997
  3. NORPRAMINE [Suspect]
     Active Substance: DESIPRAMINE
     Dosage: 300 MG, DAILY

REACTIONS (3)
  - Knee operation [Unknown]
  - Wrist surgery [Unknown]
  - Hysterectomy [Unknown]

NARRATIVE: CASE EVENT DATE: 2010
